FAERS Safety Report 6401460-7 (Version None)
Quarter: 2009Q4

REPORT INFORMATION
  Report Type: 
  Country: None (occurrence: None)
  Receive Date: 20091015
  Receipt Date: 20091008
  Transmission Date: 20100525
  Serious: Yes (Hospitalization)
  Sender: FDA-Public Use
  Company Number: DE-WYE-G04585909

PATIENT

DRUGS (1)
  1. TORISEL [Suspect]
     Indication: RENAL CELL CARCINOMA
     Dosage: UNKNOWN

REACTIONS (5)
  - BRONCHITIS [None]
  - FISTULA [None]
  - ILEUS [None]
  - PNEUMONIA [None]
  - SYSTEMIC INFLAMMATORY RESPONSE SYNDROME [None]
